FAERS Safety Report 9178958 (Version 1)
Quarter: 2013Q1

REPORT INFORMATION
  Report Type: Report from Study
  Country: ZA (occurrence: ZA)
  Receive Date: 20130321
  Receipt Date: 20130321
  Transmission Date: 20140127
  Serious: Yes (Hospitalization)
  Sender: FDA-Public Use
  Company Number: ZA-ROCHE-1203150

PATIENT
  Sex: 0

DRUGS (3)
  1. MIRCERA [Suspect]
     Indication: PRODUCT USED FOR UNKNOWN INDICATION
     Route: 058
     Dates: start: 20110924
  2. MIRCERA [Suspect]
     Route: 058
     Dates: start: 20120615
  3. MIRCERA [Suspect]
     Route: 058
     Dates: start: 20120927

REACTIONS (2)
  - Arteriovenous fistula site complication [Unknown]
  - Thromboembolectomy [Unknown]
